FAERS Safety Report 6877288-0 (Version None)
Quarter: 2010Q3

REPORT INFORMATION
  Report Type: 
  Country: None (occurrence: None)
  Receive Date: 20100716
  Receipt Date: 20100707
  Transmission Date: 20110219
  Serious: Yes (Hospitalization)
  Sender: FDA-Public Use
  Company Number: WSDF_00667

PATIENT
  Sex: Male
  Weight: 82 kg

DRUGS (7)
  1. WINRHO SDF LIQUID [Suspect]
     Indication: IDIOPATHIC THROMBOCYTOPENIC PURPURA
     Dosage: (50 ?G/KG TOTAL INTRAVENOUS (NOT OTHERWISE SPECIFIED))
     Route: 042
     Dates: start: 20070713, end: 20070713
  2. CETUXIMAB [Concomitant]
  3. BEVACIZUMAB [Concomitant]
  4. CARBOPLATIN [Concomitant]
  5. OMEPRAZOLE [Concomitant]
  6. FLOMAX [Concomitant]
  7. TAXOL [Concomitant]

REACTIONS (13)
  - ACUTE CORONARY SYNDROME [None]
  - ACUTE MYOCARDIAL INFARCTION [None]
  - CATHETER SITE PAIN [None]
  - CATHETER SITE SWELLING [None]
  - DEVICE RELATED INFECTION [None]
  - HAEMOLYSIS [None]
  - HAEMOLYTIC ANAEMIA [None]
  - HYPOTENSION [None]
  - INJECTION SITE PAIN [None]
  - INJECTION SITE SWELLING [None]
  - MUSCULOSKELETAL PAIN [None]
  - PAIN [None]
  - SERRATIA SEPSIS [None]
